FAERS Safety Report 5575200-8 (Version None)
Quarter: 2007Q4

REPORT INFORMATION
  Report Type: 
  Country: None (occurrence: None)
  Receive Date: 20071227
  Receipt Date: 20071218
  Transmission Date: 20080405
  Serious: Yes (Hospitalization)
  Sender: FDA-Public Use
  Company Number: US-ELI_LILLY_AND_COMPANY-US200712003627

PATIENT
  Sex: Female

DRUGS (16)
  1. FORTEO [Suspect]
     Dosage: UNK, UNK
     Dates: start: 20060101, end: 20071212
  2. FORTEO [Suspect]
     Dates: start: 20071217
  3. ARICEPT [Concomitant]
     Dosage: 10 MG, UNK
  4. NAMENDA [Concomitant]
  5. ZOLOFT [Concomitant]
     Dosage: 100 MG, UNK
  6. ZYRTEC [Concomitant]
     Dosage: 120 MG, DAILY (1/D)
  7. SYNTHROID [Concomitant]
  8. DILTIZEM [Concomitant]
     Dosage: 240 MG, UNK
  9. ZANTAC [Concomitant]
     Dosage: 150 MG, UNK
  10. MOBIC [Concomitant]
     Dosage: 15 MG, UNK
  11. COLACE [Concomitant]
     Dosage: 100 MG, UNK
  12. ERGOCALCIFEROL [Concomitant]
     Dosage: 1000 MG, UNK
  13. ULTRAM [Concomitant]
     Dosage: UNK, 2/D
  14. TYLENOL /USA/ [Concomitant]
     Dosage: 650 MG, 2/D
  15. ASPIRIN [Concomitant]
  16. CALCIUM D3 [Concomitant]

REACTIONS (5)
  - ASTHENIA [None]
  - DEHYDRATION [None]
  - FALL [None]
  - URINARY TRACT INFECTION [None]
  - VERTEBRAL INJURY [None]
